FAERS Safety Report 4553613-0 (Version None)
Quarter: 2004Q4

REPORT INFORMATION
  Report Type: 
  Country: None (occurrence: None)
  Receive Date: 20041227
  Receipt Date: 20041018
  Transmission Date: 20050328
  Serious: No
  Sender: FDA-Public Use
  Company Number: 04P-163-0277709

PATIENT
  Age: 68 Year
  Sex: Female
  Weight: 86.1834 kg

DRUGS (12)
  1. HUMIRA [Suspect]
     Indication: RHEUMATOID ARTHRITIS
     Dosage: 40 MG, 1 IN 2 WK, SUBCUTANEOUS
     Route: 058
     Dates: start: 20040101
  2. MELOXICAM [Concomitant]
  3. IRBESARTAN [Concomitant]
  4. FOLIC ACID [Concomitant]
  5. LEVOTHYROXINE SODIUM [Concomitant]
  6. PREDNISONE [Concomitant]
  7. ALENDRONATE SODIUM [Concomitant]
  8. AMOXICILLIN TRIHYDRATE [Concomitant]
  9. CETIRIZINE HCL [Concomitant]
  10. ZOLPIDEM TARTRATE [Concomitant]
  11. RANITIDINE HYDROCHLORIDE [Concomitant]
  12. PROPACET 100 [Concomitant]

REACTIONS (6)
  - DIZZINESS [None]
  - INSOMNIA [None]
  - LOOSE STOOLS [None]
  - NAUSEA [None]
  - POLLAKIURIA [None]
  - PRURITUS [None]
